FAERS Safety Report 8434218-8 (Version None)
Quarter: 2012Q2

REPORT INFORMATION
  Report Type: 
  Country: None (occurrence: None)
  Receive Date: 20120613
  Receipt Date: 20120612
  Transmission Date: 20120825
  Serious: Yes (Death)
  Sender: FDA-Public Use
  Company Number: PHHY2012GB050225

PATIENT
  Age: 66 Year
  Sex: Female

DRUGS (24)
  1. TIOTROPIUM BROMIDE [Concomitant]
     Dosage: 18 UG, QD
  2. ALENDRONATE SODIUM [Concomitant]
     Dosage: 70 MG, QW
  3. BISACODYL [Concomitant]
     Dosage: 5 MG, QD
  4. FENTANYL [Concomitant]
     Indication: PAIN
     Dosage: 1 DF, Q72H
  5. CLONAZEPAM [Concomitant]
     Dosage: 2 MG, TID
  6. CYANOCOBALAMIN [Concomitant]
     Dosage: 50 UG, QD
  7. FOLIC ACID [Concomitant]
     Dosage: 1 DF, QD
  8. NITROGLYCERIN [Concomitant]
     Indication: CHEST PAIN
     Dosage: UNK
  9. OMEPRAZOLE [Concomitant]
     Dosage: 20 MEQ/KG, BID
  10. ACETAMINOPHEN [Concomitant]
     Dosage: 2 DF, QD
  11. ISOSORBIDE MONONITRATE [Concomitant]
     Dosage: 40 MG, BID
  12. PREDNISOLONE [Concomitant]
     Dosage: 1 MG, QD
  13. FLUTICASONE PROPIONATE/SALMETEROL [Concomitant]
     Dosage: 2 DF, BID
  14. VENTOLIN [Concomitant]
     Dosage: 2 DF, PRN
  15. ADCAL-D3 [Concomitant]
     Indication: BONE DISORDER
     Dosage: 1 DF, BID
  16. AZITHROMYCIN [Suspect]
     Indication: PROPHYLAXIS
     Dosage: 3 DF, QW
     Route: 048
     Dates: start: 20120327
  17. AMITRIPTYLINE HYDROCHLORIDE [Concomitant]
     Dosage: 4 DF, QD
  18. BACLOFEN [Concomitant]
     Dosage: 10 MG, TID
  19. FUROSEMIDE [Concomitant]
     Dosage: 40 MG, QD
  20. LACTULOSE [Concomitant]
  21. CARBOCISTEINE [Concomitant]
     Dosage: 2 DF, TID
  22. FERROUS SULFATE TAB [Concomitant]
     Dosage: 1 DF, QD
  23. GAVISCON [Concomitant]
  24. PREDNISOLONE [Concomitant]
     Dosage: 5 MG, QD

REACTIONS (1)
  - DEATH [None]
